FAERS Safety Report 6393943-3 (Version None)
Quarter: 2009Q4

REPORT INFORMATION
  Report Type: 
  Country: None (occurrence: None)
  Receive Date: 20091008
  Receipt Date: 20091001
  Transmission Date: 20100525
  Serious: Yes (Hospitalization)
  Sender: FDA-Public Use
  Company Number: US-GILEAD-2009-0024562

PATIENT
  Sex: Female
  Weight: 77.18 kg

DRUGS (15)
  1. LETAIRIS [Suspect]
     Indication: PULMONARY ARTERIAL HYPERTENSION
     Route: 048
     Dates: start: 20090312
  2. COUMADIN [Concomitant]
  3. AMLODIPINE BESYLATE [Concomitant]
  4. DIOVAN [Concomitant]
  5. LASIX [Concomitant]
  6. LISINOPRIL [Concomitant]
  7. TOPROL-XL [Concomitant]
  8. POTASSIUM CHLORIDE [Concomitant]
  9. ALLOPURINOL [Concomitant]
  10. HYDRALAZINE HCL [Concomitant]
  11. NEXIUM [Concomitant]
  12. ZYRTEC [Concomitant]
  13. MAGNESIUM OXIDE [Concomitant]
  14. ASCORBIC ACID [Concomitant]
  15. VITAMIN E [Concomitant]

REACTIONS (2)
  - ABDOMINAL DISCOMFORT [None]
  - NAUSEA [None]
